FAERS Safety Report 9642985 (Version 1)
Quarter: 2013Q4

REPORT INFORMATION
  Report Type: Spontaneous
  Country: US (occurrence: US)
  Receive Date: 20131024
  Receipt Date: 20131024
  Transmission Date: 20140711
  Serious: Yes (Other)
  Sender: FDA-Public Use
  Company Number: US-MYLANLABS-2013S1016888

PATIENT
  Sex: Male

DRUGS (4)
  1. OXYCONTIN [Suspect]
  2. OXYCODONE [Suspect]
  3. ALPRAZOLAM [Suspect]
  4. DIAZEPAM [Suspect]

REACTIONS (2)
  - Road traffic accident [Recovered/Resolved]
  - Impaired driving ability [Unknown]
